FAERS Safety Report 18695080 (Version 1)
Quarter: 2021Q1

REPORT INFORMATION
  Report Type: Spontaneous
  Country: US (occurrence: US)
  Receive Date: 20210102
  Receipt Date: 20210102
  Transmission Date: 20210419
  Serious: Yes (Hospitalization)
  Sender: FDA-Public Use
  Company Number: None

PATIENT
  Age: 29 Year
  Weight: 112.5 kg

DRUGS (7)
  1. ALBUTEROL INHALER [Concomitant]
     Active Substance: ALBUTEROL
  2. PREDNISONE. [Concomitant]
     Active Substance: PREDNISONE
  3. OMEPRAZOLE (GENERIC) [Concomitant]
     Active Substance: OMEPRAZOLE
  4. VITAMIN C [Concomitant]
     Active Substance: ASCORBIC ACID
  5. VIT D [Concomitant]
     Active Substance: VITAMIN D NOS
  6. IRON [Concomitant]
     Active Substance: IRON
  7. RIZATRIPTAN. [Suspect]
     Active Substance: RIZATRIPTAN
     Indication: MIGRAINE
     Dosage: ?          QUANTITY:1 TABLET(S);?
     Route: 060
     Dates: start: 20201231, end: 20201231

REACTIONS (4)
  - Paraesthesia [None]
  - Neck pain [None]
  - Dizziness [None]
  - Blood pressure increased [None]

NARRATIVE: CASE EVENT DATE: 20201231
